FAERS Safety Report 11076359 (Version 1)
Quarter: 2015Q2

REPORT INFORMATION
  Report Type: Spontaneous
  Country: FR (occurrence: FR)
  Receive Date: 20150429
  Receipt Date: 20150429
  Transmission Date: 20150821
  Serious: Yes (Other)
  Sender: FDA-Public Use
  Company Number: FR-BAUSCH-BL-2015-012322

PATIENT
  Age: 60 Year
  Sex: Female

DRUGS (8)
  1. TAHOR [Interacting]
     Active Substance: ATORVASTATIN CALCIUM
     Indication: HYPERCHOLESTEROLAEMIA
     Route: 048
     Dates: start: 200610
  2. BI-TILDIEM [Suspect]
     Active Substance: DILTIAZEM
     Indication: PRINZMETAL ANGINA
     Route: 048
     Dates: start: 1999
  3. TAHOR [Interacting]
     Active Substance: ATORVASTATIN CALCIUM
     Route: 048
     Dates: start: 201501
  4. BI-TILDIEM [Interacting]
     Active Substance: DILTIAZEM
     Route: 048
     Dates: start: 1999
  5. CLOPIDOGREL [Concomitant]
     Active Substance: CLOPIDOGREL BISULFATE
     Indication: PRODUCT USED FOR UNKNOWN INDICATION
     Dates: start: 1999
  6. ISOPTIN [Interacting]
     Active Substance: VERAPAMIL HYDROCHLORIDE
     Indication: PRINZMETAL ANGINA
     Route: 048
     Dates: start: 1999
  7. IKOREL [Concomitant]
     Active Substance: NICORANDIL
     Indication: PRODUCT USED FOR UNKNOWN INDICATION
     Dates: start: 1999
  8. MONICOR [Concomitant]
     Active Substance: ISOSORBIDE MONONITRATE
     Indication: PRODUCT USED FOR UNKNOWN INDICATION
     Dates: start: 1999

REACTIONS (5)
  - Burning sensation [Recovering/Resolving]
  - Sense of oppression [Not Recovered/Not Resolved]
  - Hypoaesthesia [Not Recovered/Not Resolved]
  - Neuralgia [Not Recovered/Not Resolved]
  - Pain in extremity [Not Recovered/Not Resolved]

NARRATIVE: CASE EVENT DATE: 2009
